FAERS Safety Report 10802443 (Version 1)
Quarter: 2015Q1

REPORT INFORMATION
  Report Type: Spontaneous
  Country: FR (occurrence: FR)
  Receive Date: 20150217
  Receipt Date: 20150217
  Transmission Date: 20150721
  Serious: Yes (Hospitalization)
  Sender: FDA-Public Use
  Company Number: PHHY2015FR017250

PATIENT
  Age: 47 Year

DRUGS (2)
  1. TEMESTA [Concomitant]
     Active Substance: LORAZEPAM
     Indication: ANXIETY
     Dosage: 2.5 MG, BID
     Route: 065
     Dates: start: 20150103, end: 20150112
  2. TEGRETOL [Suspect]
     Active Substance: CARBAMAZEPINE
     Indication: PSYCHOPATHIC PERSONALITY
     Dosage: 400 MG, QD
     Route: 048
     Dates: start: 20150103, end: 20150112

REACTIONS (5)
  - Tachycardia [Recovered/Resolved]
  - Pyrexia [Recovered/Resolved]
  - Allergic oedema [Recovered/Resolved]
  - Rash [Recovered/Resolved]
  - Product use issue [Unknown]

NARRATIVE: CASE EVENT DATE: 20150103
